FAERS Safety Report 8902579 (Version 2)
Quarter: 2012Q4

REPORT INFORMATION
  Report Type: Report from Study
  Country: CA (occurrence: CA)
  Receive Date: 20121112
  Receipt Date: 20121126
  Transmission Date: 20130627
  Serious: Yes (Other)
  Sender: FDA-Public Use
  Company Number: CA-ABBOTT-12P-028-1004515-00

PATIENT
  Age: 45 None
  Sex: Female

DRUGS (1)
  1. HUMIRA [Suspect]
     Indication: CROHN^S DISEASE
     Dosage: Latest dose: 02-Nov-2012
     Route: 058
     Dates: start: 20120113

REACTIONS (3)
  - Polyp [Recovered/Resolved]
  - Injection site oedema [Recovered/Resolved]
  - Injection site warmth [Recovered/Resolved]
